FAERS Safety Report 15235182 (Version 1)
Quarter: 2018Q3

REPORT INFORMATION
  Report Type: Report from Study
  Country: None (occurrence: PR)
  Receive Date: 20180803
  Receipt Date: 20180803
  Transmission Date: 20181010
  Serious: Yes (Other)
  Sender: FDA-Public Use
  Company Number: PR-ABBVIE-18K-131-2438789-00

PATIENT
  Age: 37 Year
  Sex: Female

DRUGS (2)
  1. HUMIRA [Suspect]
     Active Substance: ADALIMUMAB
     Indication: PSORIASIS
     Route: 058
     Dates: start: 201802, end: 201804
  2. HUMIRA [Suspect]
     Active Substance: ADALIMUMAB
     Route: 058
     Dates: start: 201804

REACTIONS (5)
  - Discomfort [Recovering/Resolving]
  - Psoriasis [Recovering/Resolving]
  - Nasopharyngitis [Recovering/Resolving]
  - Uterine adhesions [Recovering/Resolving]
  - Oophorectomy [Recovering/Resolving]

NARRATIVE: CASE EVENT DATE: 2018
